FAERS Safety Report 6401336-5 (Version None)
Quarter: 2009Q4

REPORT INFORMATION
  Report Type: 
  Country: None (occurrence: None)
  Receive Date: 20091015
  Receipt Date: 20090903
  Transmission Date: 20100525
  Serious: No
  Sender: FDA-Public Use
  Company Number: US-BAYER-200932548NA

PATIENT
  Age: 38 Year
  Sex: Female
  Weight: 49 kg

DRUGS (3)
  1. MIRENA [Suspect]
     Indication: AMENORRHOEA
     Dosage: CONTINUOUS DELIVERY
     Route: 015
     Dates: start: 20090201
  2. CELEXA [Concomitant]
  3. CLONAZEPAM [Concomitant]

REACTIONS (2)
  - OVULATION PAIN [None]
  - VAGINAL DISCHARGE [None]
